FAERS Safety Report 9276080 (Version 1)
Quarter: 2012Q4

REPORT INFORMATION
  Report Type: Spontaneous
  Country: DE (occurrence: None)
  Receive Date: 20121109
  Receipt Date: 20121109
  Transmission Date: 20130627
  Serious: Yes (Other)
  Sender: FDA-Public Use
  Company Number: 2012S1000531

PATIENT
  Age: 73 Year
  Sex: Female
  Weight: 87 kg

DRUGS (3)
  1. CUBICIN [Suspect]
     Indication: BACTEREMIA
     Dosage: 4 MG/KG ; IV
     Route: 042
     Dates: start: 20120409, end: 20120417
  2. CEFTAZIDIME [Concomitant]
  3. AMPICILLLIN [Concomitant]

REACTIONS (5)
  - Body temperature fluctuation [None]
  - Hyperventilation [None]
  - White blood cell count increased [None]
  - Micturition disorder [None]
  - Hypotension [None]
